FAERS Safety Report 24355063 (Version 1)
Quarter: 2024Q3

REPORT INFORMATION
  Report Type: Report from Study
  Country: CO (occurrence: CO)
  Receive Date: 20240923
  Receipt Date: 20240923
  Transmission Date: 20241017
  Serious: Yes (Hospitalization)
  Sender: ABBVIE
  Company Number: CO-JNJFOC-20240929299

PATIENT
  Age: 68 Year
  Sex: Male
  Weight: 63 kg

DRUGS (1)
  1. IMBRUVICA [Suspect]
     Active Substance: IBRUTINIB
     Indication: Waldenstrom^s macroglobulinaemia
     Dosage: ONE TIME,?LAST ADMIN DATE: 2024
     Route: 048
     Dates: start: 20240510

REACTIONS (5)
  - Electrolyte depletion [Unknown]
  - Pneumonia [Unknown]
  - Skin discolouration [Unknown]
  - Depressed mood [Unknown]
  - Pyrexia [Unknown]

NARRATIVE: CASE EVENT DATE: 20240909
